FAERS Safety Report 5801947-1 (Version None)
Quarter: 2008Q3

REPORT INFORMATION
  Report Type: 
  Country: None (occurrence: None)
  Receive Date: 20080702
  Receipt Date: 20080624
  Transmission Date: 20090109
  Serious: Yes (Other)
  Sender: FDA-Public Use
  Company Number: 2008AP000955

PATIENT
  Age: 65 Year
  Sex: Female

DRUGS (7)
  1. ACYCLOVIR [Suspect]
     Indication: HERPES ZOSTER
     Dosage: 400 MG; BID; PO
     Route: 048
     Dates: start: 20080318, end: 20080412
  2. PREDNISOLONE ACETATE [Concomitant]
  3. GABAPENTIN [Concomitant]
  4. PRAVASTATIN [Concomitant]
  5. LISINOPRIL [Concomitant]
  6. METOPROLOL SUCCINATE [Concomitant]
  7. ACYCLOVIR [Concomitant]

REACTIONS (1)
  - CYSTITIS HAEMORRHAGIC [None]
